FAERS Safety Report 5119354-6 (Version None)
Quarter: 2006Q4

REPORT INFORMATION
  Report Type: 
  Country: None (occurrence: None)
  Receive Date: 20061002
  Receipt Date: 20061002
  Transmission Date: 20070319
  Serious: No
  Sender: FDA-Public Use
  Company Number: None

PATIENT
  Age: 29 Year
  Sex: Male

DRUGS (4)
  1. SEROQUEL [Suspect]
     Dosage: TABLET
  2. SEROQUEL [Suspect]
     Dosage: TABLET
  3. STRATTERA [Suspect]
     Dosage: CAPSULE
  4. STRATTERA [Suspect]
     Dosage: CAPSULE

REACTIONS (8)
  - AGITATION [None]
  - DYSARTHRIA [None]
  - INAPPROPRIATE SCHEDULE OF DRUG ADMINISTRATION [None]
  - INCORRECT DOSE ADMINISTERED [None]
  - MEDICATION ERROR [None]
  - OVERDOSE [None]
  - SELF-MEDICATION [None]
  - SOMNOLENCE [None]
